FAERS Safety Report 13214091 (Version 1)
Quarter: 2017Q1

REPORT INFORMATION
  Report Type: Spontaneous
  Country: FR (occurrence: FR)
  Receive Date: 20170210
  Receipt Date: 20170210
  Transmission Date: 20170428
  Serious: Yes (Other)
  Sender: FDA-Public Use
  Company Number: FR-SA-2017SA020925

PATIENT
  Age: 33 Year
  Sex: Male

DRUGS (2)
  1. OXYCONTIN [Suspect]
     Active Substance: OXYCODONE HYDROCHLORIDE
     Dosage: PROLONGED RELEASE FILM COATED TABLET
     Route: 042
     Dates: start: 20160905, end: 20160905
  2. STILNOX [Suspect]
     Active Substance: ZOLPIDEM TARTRATE
     Dosage: FILM COATED DIVISIBLE TABLET
     Route: 042
     Dates: start: 20160905, end: 20160905

REACTIONS (3)
  - Anxiety [Recovered/Resolved]
  - Skin infection [Recovering/Resolving]
  - Pyrexia [Recovering/Resolving]

NARRATIVE: CASE EVENT DATE: 20160906
